FAERS Safety Report 4440262-8 (Version None)
Quarter: 2004Q3

REPORT INFORMATION
  Report Type: 
  Country: None (occurrence: None)
  Receive Date: 20040903
  Receipt Date: 20040427
  Transmission Date: 20050211
  Serious: No
  Sender: FDA-Public Use
  Company Number: US-GLAXOSMITHKLINE-A0508651A

PATIENT
  Sex: Female

DRUGS (5)
  1. REQUIP [Suspect]
     Indication: RESTLESS LEGS SYNDROME
     Route: 048
  2. NEURONTIN [Concomitant]
  3. PLAQUENIL [Concomitant]
  4. PREVACID [Concomitant]
  5. HYDROCODONE [Concomitant]

REACTIONS (3)
  - BURNING SENSATION [None]
  - NAUSEA [None]
  - SINUSITIS [None]
